FAERS Safety Report 6073383-7 (Version None)
Quarter: 2009Q1

REPORT INFORMATION
  Report Type: 
  Country: None (occurrence: None)
  Receive Date: 20090205
  Receipt Date: 20090126
  Transmission Date: 20090719
  Serious: Yes (Other)
  Sender: FDA-Public Use
  Company Number: GXKR2009RO01160

PATIENT
  Age: 51 Year
  Sex: Female
  Weight: 68 kg

DRUGS (5)
  1. METOPROLOL SUCCINATE [Suspect]
     Indication: ESSENTIAL HYPERTENSION
     Dosage: 47.5 MG, ORAL
     Route: 048
     Dates: start: 20090119, end: 20090123
  2. ISOSORBIDE MONONITRATE [Concomitant]
  3. LANZUL (LANSOPRAZOLE) CAPSULE [Concomitant]
  4. ARCOXIA [Concomitant]
  5. GINKGO BILOBA (GINKGO BILOBA) [Concomitant]

REACTIONS (2)
  - ANGIOEDEMA [None]
  - RASH [None]
